FAERS Safety Report 14393024 (Version 1)
Quarter: 2018Q1

REPORT INFORMATION
  Report Type: Spontaneous
  Country: US (occurrence: US)
  Receive Date: 20180112
  Receipt Date: 20180112
  Transmission Date: 20180509
  Serious: Yes (Disabling)
  Sender: FDA-Public Use
  Company Number: None

PATIENT
  Age: 70 Year
  Sex: Female
  Weight: 71.1 kg

DRUGS (5)
  1. NUVIGIL [Concomitant]
     Active Substance: ARMODAFINIL
  2. ESCATALOPRAM [Concomitant]
  3. LEXAPRO [Concomitant]
     Active Substance: ESCITALOPRAM OXALATE
  4. TRINTELLIX [Suspect]
     Active Substance: VORTIOXETINE HYDROBROMIDE
     Indication: MAJOR DEPRESSION
  5. ARMODAFINIL. [Concomitant]
     Active Substance: ARMODAFINIL

REACTIONS (10)
  - Fatigue [None]
  - Nephrolithiasis [None]
  - Depression [None]
  - Malaise [None]
  - Nausea [None]
  - Pyrexia [None]
  - Infection [None]
  - Autoimmune disorder [None]
  - Diarrhoea [None]
  - Bedridden [None]
